FAERS Safety Report 20756332 (Version 2)
Quarter: 2022Q2

REPORT INFORMATION
  Report Type: Other
  Country: JP (occurrence: JP)
  Receive Date: 20220427
  Receipt Date: 20220428
  Transmission Date: 20220720
  Serious: Yes (Hospitalization, Other)
  Sender: FDA-Public Use
  Company Number: JP-CHUGAI-2022015099

PATIENT
  Age: 79 Year
  Sex: Female

DRUGS (1)
  1. CELLCEPT [Suspect]
     Active Substance: MYCOPHENOLATE MOFETIL
     Indication: Granulomatosis with polyangiitis
     Route: 048

REACTIONS (3)
  - Ileal perforation [Recovering/Resolving]
  - Lymphoproliferative disorder [Recovering/Resolving]
  - Off label use [Unknown]
